FAERS Safety Report 19820571 (Version 1)
Quarter: 2021Q3

REPORT INFORMATION
  Report Type: Spontaneous
  Country: US (occurrence: US)
  Receive Date: 20210911
  Receipt Date: 20210911
  Transmission Date: 20211014
  Serious: No
  Sender: FDA-Public Use
  Company Number: None

PATIENT
  Age: 25 Year
  Sex: Male
  Weight: 67.05 kg

DRUGS (1)
  1. TRELEGY ELLIPTA [Suspect]
     Active Substance: FLUTICASONE FUROATE\UMECLIDINIUM BROMIDE\VILANTEROL TRIFENATATE
     Indication: CHRONIC OBSTRUCTIVE PULMONARY DISEASE
     Dosage: ?          OTHER STRENGTH:MCG;QUANTITY:1 INHALATION(S);?
     Route: 055
     Dates: start: 20210809, end: 20210911

REACTIONS (2)
  - Fatigue [None]
  - Hypersomnia [None]

NARRATIVE: CASE EVENT DATE: 20210823
